FAERS Safety Report 9350043 (Version 1)
Quarter: 2013Q2

REPORT INFORMATION
  Report Type: Spontaneous
  Country: CA (occurrence: CA)
  Receive Date: 20130615
  Receipt Date: 20130615
  Transmission Date: 20140414
  Serious: Yes (Disabling)
  Sender: FDA-Public Use
  Company Number: CA-B.I. PHARMACEUTICALS,INC./RIDGEFIELD-2013-CN-01079CN

PATIENT
  Age: 74 Year
  Sex: Male

DRUGS (4)
  1. MICARDIS PLUS [Suspect]
  2. BISOPROLOL [Concomitant]
  3. ASA [Concomitant]
  4. TYLENOL [Concomitant]
     Dosage: 2600 MG

REACTIONS (4)
  - Vertigo [Unknown]
  - Dizziness [Unknown]
  - Feeling abnormal [Unknown]
  - Fall [Unknown]
